FAERS Safety Report 4597535-8 (Version None)
Quarter: 2005Q1

REPORT INFORMATION
  Report Type: 
  Country: None (occurrence: None)
  Receive Date: 20050228
  Receipt Date: 20050228
  Transmission Date: 20050727
  Serious: Yes (Hospitalization)
  Sender: FDA-Public Use
  Company Number: None

PATIENT
  Age: 50 Year
  Sex: Female
  Weight: 72.5 kg

DRUGS (3)
  1. TAXOTERE [Suspect]
     Indication: OVARIAN CANCER
     Dosage: 80 MG/M2
     Dates: start: 20050208
  2. CARBOPLATIN [Suspect]
     Indication: OVARIAN CANCER
     Dosage: AUC 6
     Dates: start: 20050208
  3. ANTIEMETICS [Concomitant]

REACTIONS (3)
  - BODY TEMPERATURE INCREASED [None]
  - GASTROINTESTINAL TOXICITY [None]
  - NEUTROPHIL COUNT DECREASED [None]
